FAERS Safety Report 10018758 (Version 2)
Quarter: 2014Q3

REPORT INFORMATION
  Report Type: Spontaneous
  Country: CA (occurrence: CA)
  Receive Date: 20140318
  Receipt Date: 20140721
  Transmission Date: 20150326
  Serious: Yes (Other)
  Sender: FDA-Public Use
  Company Number: CA-WATSON-2014-04822

PATIENT
  Sex: Female

DRUGS (1)
  1. FIBRISTAL (UNKNOWN) [Suspect]
     Active Substance: ULIPRISTAL
     Indication: UTERINE LEIOMYOMA
     Dosage: UNK
     Route: 048
     Dates: start: 201311, end: 201402

REACTIONS (3)
  - Hot flush [Recovered/Resolved]
  - Night sweats [Recovered/Resolved]
  - Uterine leiomyoma [Not Recovered/Not Resolved]
